FAERS Safety Report 14424788 (Version 1)
Quarter: 2018Q1

REPORT INFORMATION
  Report Type: Spontaneous
  Country: US (occurrence: US)
  Receive Date: 20180123
  Receipt Date: 20180123
  Transmission Date: 20180509
  Serious: No
  Sender: FDA-Public Use
  Company Number: US-OTSUKA-2017_026256

PATIENT
  Age: 19 Year
  Sex: Male
  Weight: 69.84 kg

DRUGS (2)
  1. TRINTELLIX [Suspect]
     Active Substance: VORTIOXETINE HYDROBROMIDE
     Indication: PRODUCT USED FOR UNKNOWN INDICATION
     Dosage: 10 MG, UNK
     Route: 065
  2. REXULTI [Suspect]
     Active Substance: BREXPIPRAZOLE
     Indication: PRODUCT USED FOR UNKNOWN INDICATION
     Dosage: 1 MG, UNK
     Route: 065

REACTIONS (6)
  - Headache [Recovering/Resolving]
  - Facial pain [Unknown]
  - Vitamin B12 increased [Unknown]
  - White blood cell count decreased [Unknown]
  - Anxiety [Unknown]
  - Neck pain [Unknown]
